FAERS Safety Report 18278660 (Version 18)
Quarter: 2025Q1

REPORT INFORMATION
  Report Type: Report from Study
  Country: US (occurrence: US)
  Receive Date: 20200917
  Receipt Date: 20250326
  Transmission Date: 20250409
  Serious: Yes (Hospitalization, Other)
  Sender: TAKEDA
  Company Number: US-SHIRE-US202030199

PATIENT
  Sex: Female
  Weight: 87 kg

DRUGS (27)
  1. HUMAN IMMUNOGLOBULIN G [Suspect]
     Active Substance: HUMAN IMMUNOGLOBULIN G
     Indication: Immunodeficiency common variable
     Dosage: 8 GRAM, 1/WEEK
     Dates: start: 20171101
  2. HUMAN IMMUNOGLOBULIN G [Suspect]
     Active Substance: HUMAN IMMUNOGLOBULIN G
     Dosage: 16 GRAM, Q2WEEKS
  3. INFLUENZA VIRUS VACCINE [Suspect]
     Active Substance: INFLUENZA VIRUS VACCINE
     Indication: Product used for unknown indication
  4. COVID-19 VACCINE NOS [Suspect]
     Active Substance: COVID-19 VACCINE
     Indication: Product used for unknown indication
  5. ACETAMINOPHEN [Concomitant]
     Active Substance: ACETAMINOPHEN
  6. COLACE [Concomitant]
     Active Substance: DOCUSATE SODIUM
  7. LIDODERM [Concomitant]
     Active Substance: LIDOCAINE
  8. CVS coenzyme q 10 [Concomitant]
  9. DEPAKOTE [Concomitant]
     Active Substance: DIVALPROEX SODIUM
  10. ACETAMINOPHEN\HYDROCODONE [Concomitant]
     Active Substance: ACETAMINOPHEN\HYDROCODONE
  11. ZOCOR [Concomitant]
     Active Substance: SIMVASTATIN
  12. LOSARTAN POTASSIUM [Concomitant]
     Active Substance: LOSARTAN POTASSIUM
  13. KEPPRA [Concomitant]
     Active Substance: LEVETIRACETAM
  14. VITAMIN C [Concomitant]
     Active Substance: ASCORBIC ACID
  15. VITAMIN D3 [Concomitant]
     Active Substance: CHOLECALCIFEROL
  16. ASPIRIN [Concomitant]
     Active Substance: ASPIRIN
  17. HYDROCHLOROTHIAZIDE [Concomitant]
     Active Substance: HYDROCHLOROTHIAZIDE
  18. LIDOCAINE [Concomitant]
     Active Substance: LIDOCAINE
  19. CEPHALEXIN [Concomitant]
     Active Substance: CEPHALEXIN
  20. Lmx [Concomitant]
  21. SYNTHROID [Concomitant]
     Active Substance: LEVOTHYROXINE SODIUM
  22. DIPHENHYDRAMINE HYDROCHLORIDE [Concomitant]
     Active Substance: DIPHENHYDRAMINE HYDROCHLORIDE
  23. DIPHENHYDRAMINE [Concomitant]
     Active Substance: DIPHENHYDRAMINE
  24. REFRESH OPTIVE [Concomitant]
     Active Substance: CARBOXYMETHYLCELLULOSE SODIUM\GLYCERIN
  25. EPINEPHRINE [Concomitant]
     Active Substance: EPINEPHRINE
  26. HYDROCODONE [Concomitant]
     Active Substance: HYDROCODONE
  27. Zocort [Concomitant]

REACTIONS (20)
  - Cataract [Unknown]
  - Pneumonia [Unknown]
  - Wound infection staphylococcal [Not Recovered/Not Resolved]
  - Clostridium difficile colitis [Unknown]
  - Cardiac arrest [Unknown]
  - Hordeolum [Unknown]
  - Tooth infection [Unknown]
  - COVID-19 [Unknown]
  - Cystitis [Unknown]
  - Drug hypersensitivity [Unknown]
  - Hypertonic bladder [Unknown]
  - Vaccination site swelling [Unknown]
  - Vaccination site pain [Unknown]
  - Inappropriate schedule of product administration [Unknown]
  - Off label use [Unknown]
  - Acne [Unknown]
  - Infusion site mass [Unknown]
  - Oropharyngeal pain [Unknown]
  - Muscle spasms [Not Recovered/Not Resolved]
  - Pruritus [Unknown]
